FAERS Safety Report 9995715 (Version 1)
Quarter: 2014Q1

REPORT INFORMATION
  Report Type: Spontaneous
  Country: FR (occurrence: FR)
  Receive Date: 20140311
  Receipt Date: 20140311
  Transmission Date: 20141002
  Serious: Yes (Hospitalization)
  Sender: FDA-Public Use
  Company Number: FR-AMGEN-FRASP2014015985

PATIENT
  Age: 35 Year
  Sex: Male

DRUGS (3)
  1. ARANESP [Suspect]
     Indication: PRODUCT USED FOR UNKNOWN INDICATION
     Dosage: 80 MG, QWK
     Route: 058
     Dates: start: 20130309, end: 20140128
  2. PROGRAF [Concomitant]
     Dosage: 20 MG, QD
     Route: 048
     Dates: start: 20130303
  3. CELLCEPT                           /01275102/ [Concomitant]
     Dosage: 1 G, QD
     Route: 065
     Dates: start: 20130309

REACTIONS (2)
  - Anaemia [Not Recovered/Not Resolved]
  - Bone marrow failure [Not Recovered/Not Resolved]
